FAERS Safety Report 4390997-0 (Version None)
Quarter: 2004Q2

REPORT INFORMATION
  Report Type: 
  Country: None (occurrence: None)
  Receive Date: 20040621
  Receipt Date: 20031022
  Transmission Date: 20050107
  Serious: Yes (Other)
  Sender: FDA-Public Use
  Company Number: USA-2003-0010498

PATIENT
  Age: 43 Year
  Sex: Female

DRUGS (5)
  1. OXYCONTIN [Suspect]
     Indication: PAIN
     Dosage: 10 MG, TID, ORAL
     Route: 048
  2. OXYCODONE HCL [Suspect]
     Dosage: 5 MG, PRN, ORAL
     Route: 048
  3. NEURONTIN [Concomitant]
  4. ZANAFLEX [Concomitant]
  5. LIPITOR [Concomitant]

REACTIONS (11)
  - ABNORMAL BEHAVIOUR [None]
  - ANGER [None]
  - CRYING [None]
  - DEPRESSION [None]
  - DRUG DEPENDENCE [None]
  - DRUG WITHDRAWAL SYNDROME [None]
  - FATIGUE [None]
  - MOOD ALTERED [None]
  - PAIN [None]
  - PARANOID PERSONALITY DISORDER [None]
  - SUICIDAL IDEATION [None]
